FAERS Safety Report 10213315 (Version 1)
Quarter: 2014Q2

REPORT INFORMATION
  Report Type: Spontaneous
  Country: IT (occurrence: None)
  Receive Date: 20140529
  Receipt Date: 20140529
  Transmission Date: 20141212
  Serious: Yes (Death, Other)
  Sender: FDA-Public Use
  Company Number: 2014STPI000229

PATIENT
  Age: 57 Year
  Sex: Female

DRUGS (12)
  1. MATULANE [Suspect]
     Indication: CENTRAL NERVOUS SYSTEM LYMPHOMA
     Route: 048
     Dates: start: 20140426, end: 20140427
  2. VINCRISTINE SULFATE (VINCRISTINE SULFATE) [Suspect]
     Indication: PRODUCT USED FOR UNKNOWN INDICATION
     Route: 042
     Dates: start: 20140425, end: 20140425
  3. ROVALCYTE (VALGANCICLOVIR HYDROCHLORIDE) UNKNOWN [Suspect]
     Indication: PRODUCT USED FOR UNKNOWN INDICATION
     Route: 048
     Dates: start: 20140414, end: 20140427
  4. METHOTREXATE SODIUM (METHOTREXATE SODIUM) [Suspect]
     Indication: PRODUCT USED FOR UNKNOWN INDICATION
     Route: 042
     Dates: start: 20140323, end: 20140323
  5. BACTRIM [Suspect]
     Indication: PRODUCT USED FOR UNKNOWN INDICATION
     Route: 048
  6. INEXIUM (ESOMEPRAZOLE MAGNESIUM) (ESOMEPRAZOLE MAGNESIUM) [Suspect]
     Indication: PRODUCT USED FOR UNKNOWN INDICATION
     Route: 048
     Dates: start: 20140414
  7. PANTOPRAZOLE (PANTOPRAZOLE) [Concomitant]
  8. TAZOCILLINE (PIPERACILLIN SODIUM, TAZOBACTAM SODIUM) [Concomitant]
  9. CIPROFLOXACINE TEVA (CIPROFLOXACIN HYDROCHLORIDE) [Concomitant]
  10. GANCICLOVIR (GANCICLOVIR SODIUM) [Concomitant]
  11. ZARZIO (FILGRASTIM) [Concomitant]
  12. HEPARIN-FRACTION, SODIUM SALT (HEPARIN-FRACTION, SODIUM SALT) [Concomitant]

REACTIONS (13)
  - Septic shock [None]
  - Chemotherapeutic drug level increased [None]
  - Arterial thrombosis [None]
  - Venous thrombosis [None]
  - Pancytopenia [None]
  - Oxygen saturation decreased [None]
  - Myositis [None]
  - Coma [None]
  - Multi-organ failure [None]
  - Cardio-respiratory arrest [None]
  - Overdose [None]
  - Cytomegalovirus infection [None]
  - Haematotoxicity [None]
